FAERS Safety Report 6576426-7 (Version None)
Quarter: 2010Q1

REPORT INFORMATION
  Report Type: 
  Country: None (occurrence: None)
  Receive Date: 20100210
  Receipt Date: 20100202
  Transmission Date: 20100710
  Serious: Yes (Hospitalization)
  Sender: FDA-Public Use
  Company Number: US-ABBOTT-10P-163-0623599-00

PATIENT
  Sex: Female
  Weight: 76.726 kg

DRUGS (5)
  1. HUMIRA [Suspect]
     Indication: RHEUMATOID ARTHRITIS
     Route: 058
     Dates: start: 20091001
  2. PREDNISONE [Suspect]
     Indication: DRUG USE FOR UNKNOWN INDICATION
     Route: 048
  3. PLAQUENIL [Suspect]
     Indication: DRUG USE FOR UNKNOWN INDICATION
     Route: 048
  4. VICODIN [Suspect]
     Indication: ARTHRALGIA
     Route: 048
  5. NEURONTIN [Suspect]
     Indication: NEUROPATHY PERIPHERAL
     Route: 048

REACTIONS (2)
  - DYSARTHRIA [None]
  - SINUSITIS [None]
